FAERS Safety Report 21863572 (Version 1)
Quarter: 2023Q1

REPORT INFORMATION
  Report Type: Spontaneous
  Country: US (occurrence: US)
  Receive Date: 20230116
  Receipt Date: 20230116
  Transmission Date: 20230418
  Serious: Yes (Death, Hospitalization, Other)
  Sender: FDA-Public Use
  Company Number: US-AMGEN-USASP2023002852

PATIENT
  Age: 66 Year
  Sex: Female

DRUGS (4)
  1. INFLIXIMAB [Suspect]
     Active Substance: INFLIXIMAB
     Indication: Crohn^s disease
     Dosage: UNK
     Route: 065
  2. MESALAMINE [Concomitant]
     Active Substance: MESALAMINE
     Indication: Crohn^s disease
     Dosage: UNK
     Route: 065
  3. PREDNISONE [Concomitant]
     Active Substance: PREDNISONE
     Indication: Crohn^s disease
     Dosage: UNK
     Route: 065
  4. PREDNISONE [Concomitant]
     Active Substance: PREDNISONE
     Dosage: 40 MILLIGRAM, QD
     Route: 065

REACTIONS (10)
  - Respiratory failure [Unknown]
  - Immunosuppression [Unknown]
  - Shock [Unknown]
  - Crohn^s disease [Unknown]
  - Atelectasis [Unknown]
  - Impetigo [Unknown]
  - Herpes simplex [Unknown]
  - Pseudomonas infection [Unknown]
  - Systemic candida [Unknown]
  - Disseminated cytomegaloviral infection [Fatal]
